FAERS Safety Report 16900126 (Version 1)
Quarter: 2019Q4

REPORT INFORMATION
  Report Type: Spontaneous
  Country: US (occurrence: US)
  Receive Date: 20191007
  Receipt Date: 20191007
  Transmission Date: 20200122
  Serious: Yes (Other)
  Sender: FDA-Public Use
  Company Number: None

PATIENT
  Age: 52 Year
  Sex: Female
  Weight: 42.75 kg

DRUGS (2)
  1. MULTI VITAMIN [Concomitant]
     Active Substance: VITAMINS
  2. SORE THROAT SPRAY [Suspect]
     Active Substance: PHENOL
     Indication: OROPHARYNGEAL PAIN
     Dosage: ?          QUANTITY:1 SPRAY(S);OTHER FREQUENCY:EVERY 2 HOURS;?
     Route: 048

REACTIONS (2)
  - Product label confusion [None]
  - Product use complaint [None]

NARRATIVE: CASE EVENT DATE: 20191002
